FAERS Safety Report 14993091 (Version 1)
Quarter: 2018Q2

REPORT INFORMATION
  Report Type: Spontaneous
  Country: US (occurrence: US)
  Receive Date: 20180517
  Receipt Date: 20180517
  Transmission Date: 20180711
  Serious: Yes (Other)
  Sender: FDA-Public Use
  Company Number: None

PATIENT
  Age: 75 Year
  Sex: Female
  Weight: 73.48 kg

DRUGS (5)
  1. SIMVASTATIN. [Concomitant]
     Active Substance: SIMVASTATIN
  2. CALCIUM [Concomitant]
     Active Substance: CALCIUM
  3. MULTIVIATIMIN [Concomitant]
  4. LOW DOSE ASPRIN [Concomitant]
     Active Substance: ASPIRIN
  5. MIDAZOLAM INJECTION OF 2CM (OR ML) [Suspect]
     Active Substance: MIDAZOLAM HYDROCHLORIDE
     Indication: CATARACT OPERATION
     Route: 042

REACTIONS (13)
  - Feeling abnormal [None]
  - Thinking abnormal [None]
  - Decreased appetite [None]
  - Mental disorder [None]
  - Anger [None]
  - Restlessness [None]
  - Confusional state [None]
  - Sensation of blood flow [None]
  - Tremor [None]
  - Nightmare [None]
  - Crying [None]
  - Dysphagia [None]
  - Balance disorder [None]

NARRATIVE: CASE EVENT DATE: 20171128
